FAERS Safety Report 17526525 (Version 3)
Quarter: 2020Q1

REPORT INFORMATION
  Report Type: Spontaneous
  Country: US (occurrence: US)
  Receive Date: 20200311
  Receipt Date: 20200316
  Transmission Date: 20200409
  Serious: Yes (Other)
  Sender: FDA-Public Use
  Company Number: US-PFIZER INC-2020101804

PATIENT
  Age: 61 Year
  Sex: Male
  Weight: 88 kg

DRUGS (1)
  1. AMLODIPINE BESILATE [Suspect]
     Active Substance: AMLODIPINE BESYLATE
     Indication: ARTERIOSPASM CORONARY
     Dosage: 2.5 MG, 1X/DAY
     Route: 048

REACTIONS (4)
  - Bradycardia [Not Recovered/Not Resolved]
  - Off label use [Unknown]
  - Product use in unapproved indication [Unknown]
  - Hypergammaglobulinaemia benign monoclonal [Not Recovered/Not Resolved]

NARRATIVE: CASE EVENT DATE: 2016
